FAERS Safety Report 17769482 (Version 8)
Quarter: 2020Q2

REPORT INFORMATION
  Report Type: Spontaneous
  Country: AR (occurrence: AR)
  Receive Date: 20200512
  Receipt Date: 20200610
  Transmission Date: 20200714
  Serious: Yes (Other)
  Sender: FDA-Public Use
  Company Number: AR-MYLANLABS-2020M1046466

PATIENT
  Age: 47 Year
  Sex: Female

DRUGS (3)
  1. OLANZAPINE. [Suspect]
     Active Substance: OLANZAPINE
     Indication: PRODUCT USED FOR UNKNOWN INDICATION
     Dosage: UNK
  2. LAPENAX [Suspect]
     Active Substance: CLOZAPINE
     Indication: SCHIZOPHRENIA
     Dosage: 100 MILLIGRAM, QD
     Dates: start: 201909, end: 20200507
  3. CLONAZEPAM. [Concomitant]
     Active Substance: CLONAZEPAM
     Dosage: UNK

REACTIONS (8)
  - Neutropenia [Recovered/Resolved]
  - Agranulocytosis [Recovering/Resolving]
  - Monocyte count increased [Recovered/Resolved]
  - Eosinophil count decreased [Recovered/Resolved]
  - Leukopenia [Recovered/Resolved]
  - Basophil count increased [Recovered/Resolved]
  - Monocyte count decreased [Recovered/Resolved]
  - Lymphocyte count increased [Recovered/Resolved]

NARRATIVE: CASE EVENT DATE: 20200506
